FAERS Safety Report 21496993 (Version 1)
Quarter: 2022Q4

REPORT INFORMATION
  Report Type: Spontaneous
  Country: US (occurrence: US)
  Receive Date: 20221023
  Receipt Date: 20221023
  Transmission Date: 20230112
  Serious: Yes (Life-Threatening)
  Sender: FDA-Public Use
  Company Number: US-drreddys-LIT/USA/22/0156060

PATIENT
  Age: 34 Year
  Sex: Female

DRUGS (5)
  1. TACROLIMUS [Suspect]
     Active Substance: TACROLIMUS
     Indication: Transplant rejection
  2. SIROLIMUS [Suspect]
     Active Substance: SIROLIMUS
     Indication: Transplant rejection
  3. RITUXIMAB [Suspect]
     Active Substance: RITUXIMAB
     Indication: Transplant rejection
  4. EVEROLIMUS [Suspect]
     Active Substance: EVEROLIMUS
     Indication: Transplant rejection
  5. AZATHIOPRINE [Suspect]
     Active Substance: AZATHIOPRINE
     Indication: Transplant rejection

REACTIONS (4)
  - Bone marrow transplant rejection [Unknown]
  - Plasma cell disorder [Unknown]
  - Encephalopathy [Unknown]
  - Drug ineffective [Unknown]

NARRATIVE: CASE EVENT DATE: 20031201
